FAERS Safety Report 23841639 (Version 1)
Quarter: 2024Q2

REPORT INFORMATION
  Report Type: Spontaneous
  Country: US (occurrence: None)
  Receive Date: 20240509
  Receipt Date: 20240509
  Transmission Date: 20240716
  Serious: Yes (Disabling)
  Sender: FDA-Public Use
  Company Number: None

PATIENT
  Age: 7 Year
  Sex: Male

DRUGS (3)
  1. FLOVENT HFA [Suspect]
     Active Substance: FLUTICASONE PROPIONATE
     Indication: Asthma
     Dosage: OTHER QUANTITY : 1 PUFF(S);?FREQUENCY : TWICE A DAY;?
     Route: 055
  2. Flowvent [Concomitant]
  3. TUBES IN EAR [Concomitant]

REACTIONS (2)
  - Pain [None]
  - Malaise [None]

NARRATIVE: CASE EVENT DATE: 20240507
